FAERS Safety Report 7612040-X (Version None)
Quarter: 2011Q3

REPORT INFORMATION
  Report Type: 
  Country: None (occurrence: None)
  Receive Date: 20110715
  Receipt Date: 20110714
  Transmission Date: 20111222
  Serious: Yes (Death)
  Sender: FDA-Public Use
  Company Number: US-B.I. PHARMACEUTICALS,INC./RIDGEFIELD-2011-BP-15262BP

PATIENT
  Age: 91 Year
  Sex: Female

DRUGS (10)
  1. PRADAXA [Suspect]
     Indication: ATRIAL FIBRILLATION
     Dosage: 300 MG
     Route: 048
     Dates: start: 20110601, end: 20110612
  2. LISINOPRIL [Concomitant]
     Dosage: 20 MG
  3. PRAVASTATIN [Concomitant]
     Dosage: 20 MG
  4. METOPROLOL TARTRATE [Concomitant]
     Dosage: 200 MG
     Dates: start: 20110601
  5. LASIX [Concomitant]
     Dosage: 80 MG
  6. ASPIRIN [Concomitant]
     Dosage: 81 MG
  7. POTASSIUM [Concomitant]
     Dosage: 20 MEQ
  8. DIGOXIN [Concomitant]
     Dosage: 0.125 MG
  9. LANTUS [Concomitant]
  10. WELCHOL [Concomitant]
     Dosage: 1250 MG

REACTIONS (3)
  - CONTUSION [None]
  - LOWER GASTROINTESTINAL HAEMORRHAGE [None]
  - HAEMOGLOBIN ABNORMAL [None]
